FAERS Safety Report 18972148 (Version 1)
Quarter: 2021Q1

REPORT INFORMATION
  Report Type: Other
  Country: AT (occurrence: AT)
  Receive Date: 20210305
  Receipt Date: 20210305
  Transmission Date: 20210420
  Serious: Yes (Hospitalization)
  Sender: FDA-Public Use
  Company Number: AT-ROCHE-2777644

PATIENT
  Age: 42 Year
  Sex: Female
  Weight: 60 kg

DRUGS (27)
  1. PERTUZUMAB. [Suspect]
     Active Substance: PERTUZUMAB
     Indication: BREAST CANCER
     Dosage: FREQUENCY: Q3W ? EVERY 3 WEEKS MOST RECENT DOSE PRIOR TO THE EVENT ON 22/NOV/2018
     Route: 042
     Dates: start: 201811
  2. LAFENE [Concomitant]
     Indication: SPINAL PAIN
     Dosage: ONGOING = NOT CHECKED
     Dates: start: 20190421, end: 20200224
  3. PARACETAMOL [Concomitant]
     Active Substance: ACETAMINOPHEN
     Indication: VOMITING
  4. DENOSUMAB [Suspect]
     Active Substance: DENOSUMAB
     Indication: BREAST CANCER
     Dosage: FREQUENCY: MONTHLY MOST RECENT DOSE PRIOR TO THE EVENT ON 19/MAR/2019
     Route: 058
     Dates: start: 201611, end: 20181129
  5. LETROZOLE. [Suspect]
     Active Substance: LETROZOLE
     Indication: BREAST CANCER
     Route: 048
     Dates: start: 20180426
  6. LYRICA [Concomitant]
     Active Substance: PREGABALIN
     Indication: GENERAL PHYSICAL HEALTH DETERIORATION
     Dosage: ONGOING = NOT CHECKED
     Dates: start: 20200225, end: 20200417
  7. FORTECORTIN [Concomitant]
     Active Substance: DEXAMETHASONE
     Indication: VOMITING
     Dosage: ONGOING = NOT CHECKED
     Dates: start: 20200303, end: 20200309
  8. PARKEMED [Concomitant]
     Active Substance: MEFENAMIC ACID
     Dosage: ONGOING = NOT CHECKED
     Dates: start: 20170315, end: 20200417
  9. ZOFRAN [Concomitant]
     Active Substance: ONDANSETRON HYDROCHLORIDE
     Indication: NAUSEA
     Dosage: ONGOING = NOT CHECKED
     Dates: start: 20200228, end: 20200228
  10. MOLAXOLE [Concomitant]
     Active Substance: POLYETHYLENE GLYCOL 3350\POTASSIUM CHLORIDE\SODIUM BICARBONATE\SODIUM CHLORIDE
     Indication: NAUSEA
     Dosage: ONGOING = NOT CHECKED
     Dates: start: 20200306, end: 20200311
  11. MOLAXOLE [Concomitant]
     Active Substance: POLYETHYLENE GLYCOL 3350\POTASSIUM CHLORIDE\SODIUM BICARBONATE\SODIUM CHLORIDE
     Indication: VOMITING
  12. TRASTUZUMAB EMTANSINE [Suspect]
     Active Substance: ADO-TRASTUZUMAB EMTANSINE
     Indication: BREAST CANCER
     Dosage: FREQUENCY: Q4W ? EVERY 4 WEEKS MOST RECENT DOSE PRIOR TO THE EVENT ON 21/AUG/2017
     Route: 042
     Dates: start: 20161114, end: 20170522
  13. NOVALGIN (AUSTRIA) [Concomitant]
     Dosage: ONGOING = NOT CHECKED
     Dates: start: 20181117, end: 20200417
  14. LAFENE [Concomitant]
     Indication: GENERAL PHYSICAL HEALTH DETERIORATION
     Dosage: ONGOING = NOT CHECKED
     Dates: start: 20200225, end: 20200417
  15. VENDAL [Concomitant]
     Active Substance: MORPHINE HYDROCHLORIDE
     Indication: GENERAL PHYSICAL HEALTH DETERIORATION
     Dosage: ONGOING = NOT CHECKED
     Dates: start: 20200225, end: 20200417
  16. PARACETAMOL [Concomitant]
     Active Substance: ACETAMINOPHEN
     Indication: NAUSEA
     Dosage: ONGOING = NOT CHECKED
     Dates: start: 20200228, end: 20200228
  17. ZOLPIDEM [Concomitant]
     Active Substance: ZOLPIDEM TARTRATE
     Indication: VOMITING
  18. FORTECORTIN [Concomitant]
     Active Substance: DEXAMETHASONE
     Indication: NAUSEA
     Dosage: ONGOING = NOT CHECKED
     Dates: start: 20200229, end: 20200302
  19. EMEND [Concomitant]
     Active Substance: APREPITANT
     Dosage: ONGOING = NOT CHECKED
     Dates: start: 20161115, end: 20200417
  20. ZOLPIDEM [Concomitant]
     Active Substance: ZOLPIDEM TARTRATE
     Indication: NAUSEA
     Dosage: ONGOING = NOT CHECKED
     Dates: start: 20200228, end: 20200417
  21. FRAGMIN [Concomitant]
     Active Substance: DALTEPARIN SODIUM
     Dosage: ONGOING = NOT CHECKED
     Dates: start: 20200228, end: 20200311
  22. MEXALEN [Concomitant]
     Active Substance: ACETAMINOPHEN
     Indication: METASTASES TO CENTRAL NERVOUS SYSTEM
     Dosage: ONGOING = NOT CHECKED
     Dates: start: 20170609, end: 20200417
  23. TRASTUZUMAB. [Suspect]
     Active Substance: TRASTUZUMAB
     Indication: BREAST CANCER
     Dosage: Q3W ? EVERY 3 WEEKS
     Route: 042
     Dates: start: 20180503
  24. ZOFRAN [Concomitant]
     Active Substance: ONDANSETRON HYDROCHLORIDE
     Indication: VOMITING
  25. FORTECORTIN [Concomitant]
     Active Substance: DEXAMETHASONE
     Dosage: ONGOING = NOT CHECKED
     Dates: start: 20170330, end: 20200417
  26. ZOFRAN [Concomitant]
     Active Substance: ONDANSETRON HYDROCHLORIDE
     Dosage: ONGOING = NOT CHECKED
     Dates: start: 20161115, end: 20200417
  27. MIRANAX [Concomitant]
     Dosage: ONGOING = NOT CHECKED
     Dates: start: 20161115, end: 20200417

REACTIONS (1)
  - Post herpetic neuralgia [Not Recovered/Not Resolved]

NARRATIVE: CASE EVENT DATE: 20200225
